FAERS Safety Report 11116199 (Version 1)
Quarter: 2015Q2

REPORT INFORMATION
  Report Type: Spontaneous
  Country: US (occurrence: None)
  Receive Date: 20150514
  Receipt Date: 20150514
  Transmission Date: 20150821
  Serious: Yes (Other)
  Sender: FDA-Public Use
  Company Number: None

PATIENT
  Age: 3 Year
  Sex: Male
  Weight: 14.52 kg

DRUGS (4)
  1. TOPIRAMATE 15MG [Suspect]
     Active Substance: TOPIRAMATE
     Indication: SEIZURE
     Dosage: 3 CAPSULES, TWICE DAILY, TAKEN BY MOUTH?1 1/2 YEARS
     Route: 048
  2. FISH OIL SUPPLEMENT [Concomitant]
  3. LEVETIRACETAM. [Concomitant]
     Active Substance: LEVETIRACETAM
  4. ZONISAMIDE 50 MG GLENMARK [Suspect]
     Active Substance: ZONISAMIDE
     Indication: SEIZURE
     Dosage: 1 CAPSULE, ONCE DAILY, TAKEN BY MOUTH
     Route: 048
     Dates: start: 20150312, end: 20150513

REACTIONS (2)
  - Anhidrosis [None]
  - Body temperature increased [None]

NARRATIVE: CASE EVENT DATE: 20150513
